FAERS Safety Report 5910706-0 (Version None)
Quarter: 2008Q4

REPORT INFORMATION
  Report Type: 
  Country: None (occurrence: None)
  Receive Date: 20081006
  Receipt Date: 20081006
  Transmission Date: 20090506
  Serious: Yes (Hospitalization)
  Sender: FDA-Public Use
  Company Number: None

PATIENT
  Sex: Female
  Weight: 105.6881 kg

DRUGS (1)
  1. FLUORESCITE [Suspect]
     Indication: OPHTHALMOLOGICAL EXAMINATION
     Dosage: 500MG/5CC IV
     Route: 042
     Dates: start: 20080919, end: 20080919

REACTIONS (1)
  - PANCREATITIS [None]
